FAERS Safety Report 16299984 (Version 1)
Quarter: 2019Q2

REPORT INFORMATION
  Report Type: Other
  Country: ES (occurrence: ES)
  Receive Date: 20190510
  Receipt Date: 20190510
  Transmission Date: 20190711
  Serious: Yes (Death, Hospitalization, Other)
  Sender: FDA-Public Use
  Company Number: ES-ASTELLAS-2019US019765

PATIENT
  Age: 67 Year
  Sex: Male

DRUGS (5)
  1. ANTILYMPHOCYTE IMMUNOGLOBULIN (RABBIT) [Interacting]
     Active Substance: LAPINE T-LYMPHOCYTE IMMUNE GLOBULIN
     Indication: RENAL TRANSPLANT
     Route: 042
     Dates: start: 20181127, end: 20181202
  2. METHYLPREDISOLONE [Interacting]
     Active Substance: METHYLPREDNISOLONE
     Indication: RENAL TRANSPLANT
     Route: 042
     Dates: start: 20181127, end: 20181129
  3. TACROLIMUS. [Suspect]
     Active Substance: TACROLIMUS
     Indication: RENAL TRANSPLANT
     Route: 048
     Dates: start: 20181127, end: 20181202
  4. MYCOPHENOLATE MOFETIL. [Interacting]
     Active Substance: MYCOPHENOLATE MOFETIL
     Indication: RENAL TRANSPLANT
     Route: 048
     Dates: start: 20181127, end: 20181202
  5. METHYLPREDISOLONE [Interacting]
     Active Substance: METHYLPREDNISOLONE
     Route: 042
     Dates: start: 20181129, end: 20181202

REACTIONS (2)
  - Klebsiella sepsis [Fatal]
  - Drug interaction [Unknown]

NARRATIVE: CASE EVENT DATE: 20181201
